FAERS Safety Report 7988028-6 (Version None)
Quarter: 2011Q4

REPORT INFORMATION
  Report Type: 
  Country: None (occurrence: None)
  Receive Date: 20111216
  Receipt Date: 20110104
  Transmission Date: 20120403
  Serious: No
  Sender: FDA-Public Use
  Company Number: US-BRISTOL-MYERS SQUIBB COMPANY-15416258

PATIENT
  Age: 66 Year
  Sex: Female
  Weight: 68 kg

DRUGS (8)
  1. CLONAZEPAM [Concomitant]
  2. SYNTHROID [Concomitant]
  3. LEXAPRO [Concomitant]
  4. STEROIDS [Concomitant]
     Dosage: LUMBAR INJECTION
  5. ESTRACE [Concomitant]
  6. FLONASE [Concomitant]
  7. ABILIFY [Suspect]
     Indication: DEPRESSION
     Dosage: TAKEN IN THE EVENING AND SWITHCHED TO MORNING
  8. ZOCOR [Concomitant]

REACTIONS (6)
  - SLEEP DISORDER [None]
  - GASTROOESOPHAGEAL REFLUX DISEASE [None]
  - CONSTIPATION [None]
  - AGITATION [None]
  - NAUSEA [None]
  - INCONTINENCE [None]
